FAERS Safety Report 7609045-1 (Version None)
Quarter: 2011Q3

REPORT INFORMATION
  Report Type: 
  Country: None (occurrence: None)
  Receive Date: 20110714
  Receipt Date: 20110708
  Transmission Date: 20111222
  Serious: Yes (Hospitalization)
  Sender: FDA-Public Use
  Company Number: HU-ROCHE-789125

PATIENT
  Sex: Female
  Weight: 60 kg

DRUGS (3)
  1. TRASTUZUMAB [Suspect]
     Dosage: FORM: VIALS DATE OFLAST DOSE PRIOR TO SAE: 13 JAN 2011
     Route: 042
     Dates: start: 20100913
  2. CARBOPLATIN [Suspect]
     Dosage: DOSE: 6 AUC, TOTAL DOSE: 760 MG, DATE OFLAST DOSE PRIOR TO SAE: 28 DEC  2010
     Route: 042
     Dates: start: 20100913
  3. DOCETAXEL [Suspect]
     Dosage: TOTAL DOSE: 130 MG, FORM: VIAL, DATE OF LAST DOSE PRIOR TO SAE: 28 DEC  2010
     Route: 042
     Dates: start: 20100913

REACTIONS (2)
  - ANGINA PECTORIS [None]
  - ELECTROCARDIOGRAM T WAVE INVERSION [None]
